FAERS Safety Report 22291605 (Version 1)
Quarter: 2023Q2

REPORT INFORMATION
  Report Type: Spontaneous
  Country: FR (occurrence: FR)
  Receive Date: 20230507
  Receipt Date: 20230507
  Transmission Date: 20230721
  Serious: Yes (Other)
  Sender: FDA-Public Use
  Company Number: FR-Shilpa Medicare Limited-SML-FR-2023-00490

PATIENT
  Age: 83 Year
  Sex: Female

DRUGS (9)
  1. DOCETAXEL [Suspect]
     Active Substance: DOCETAXEL
     Indication: Sarcoma metastatic
     Dosage: 75 MILLIGRAM/SQ. METER
     Route: 065
     Dates: start: 20210525
  2. DOCETAXEL [Suspect]
     Active Substance: DOCETAXEL
     Indication: Tuberous sclerosis complex
  3. DOCETAXEL [Suspect]
     Active Substance: DOCETAXEL
     Indication: Myxofibrosarcoma
  4. DOXORUBICIN [Suspect]
     Active Substance: DOXORUBICIN
     Indication: Sarcoma metastatic
     Dosage: UNK
     Route: 065
  5. DOXORUBICIN [Suspect]
     Active Substance: DOXORUBICIN
     Indication: Tuberous sclerosis complex
  6. GEMCITABINE [Suspect]
     Active Substance: GEMCITABINE
     Indication: Sarcoma metastatic
     Dosage: 675 MILLIGRAM/SQ. METER(ON DAY 1AND DAY 8)
     Route: 065
  7. GEMCITABINE [Suspect]
     Active Substance: GEMCITABINE
     Indication: Tuberous sclerosis complex
  8. SIROLIMUS [Suspect]
     Active Substance: SIROLIMUS
     Indication: Sarcoma metastatic
     Dosage: 100 MILLIGRAM/SQ. METER,
     Route: 065
  9. SIROLIMUS [Suspect]
     Active Substance: SIROLIMUS
     Indication: Tuberous sclerosis complex
     Dosage: 5 MILLIGRAM, DAILY
     Route: 065

REACTIONS (7)
  - Anorectal discomfort [Unknown]
  - Pelvic mass [Unknown]
  - Neutropenia [Unknown]
  - Drug ineffective [Unknown]
  - Off label use [Unknown]
  - Anaemia [Unknown]
  - Fatigue [Unknown]
